FAERS Safety Report 17453064 (Version 1)
Quarter: 2020Q1

REPORT INFORMATION
  Report Type: Report from Study
  Country: NL (occurrence: NL)
  Receive Date: 20200224
  Receipt Date: 20200224
  Transmission Date: 20200409
  Serious: Yes (Death)
  Sender: FDA-Public Use
  Company Number: NL-ASTRAZENECA-2020SE25969

PATIENT
  Sex: Female

DRUGS (1)
  1. FASLODEX [Suspect]
     Active Substance: FULVESTRANT
     Indication: BREAST CANCER FEMALE
     Dosage: 1 X 4 WEEKS 500 MG (2 INJECTIONS OF 250 MG / 5 ML)
     Route: 030
     Dates: start: 20191223, end: 20200121

REACTIONS (1)
  - Death [Fatal]
